FAERS Safety Report 17041174 (Version 3)
Quarter: 2020Q1

REPORT INFORMATION
  Report Type: Spontaneous
  Country: US (occurrence: US)
  Receive Date: 20191118
  Receipt Date: 20200106
  Transmission Date: 20200409
  Serious: Yes (Other)
  Sender: FDA-Public Use
  Company Number: US-009507513-1911USA005648

PATIENT
  Sex: Female
  Weight: 81.63 kg

DRUGS (1)
  1. NEXPLANON [Suspect]
     Active Substance: ETONOGESTREL
     Dosage: 1 IMPLANT
     Route: 059
     Dates: start: 20190124, end: 20191112

REACTIONS (6)
  - Skin striae [Recovered/Resolved]
  - Implant site irritation [Recovered/Resolved]
  - Device breakage [Recovered/Resolved]
  - Implant site pruritus [Recovered/Resolved]
  - Device dislocation [Recovered/Resolved]
  - Nausea [Recovered/Resolved]

NARRATIVE: CASE EVENT DATE: 2019
